FAERS Safety Report 7664834-2 (Version None)
Quarter: 2011Q3

REPORT INFORMATION
  Report Type: 
  Country: None (occurrence: None)
  Receive Date: 20110806
  Receipt Date: 20110131
  Transmission Date: 20111222
  Serious: No
  Sender: FDA-Public Use
  Company Number: US-ABBOTT-11P-163-0702667-00

PATIENT
  Weight: 77.18 kg

DRUGS (6)
  1. CALCIUM ACETATE [Concomitant]
     Indication: MINERAL SUPPLEMENTATION
  2. NIASPAN [Suspect]
     Indication: HIGH DENSITY LIPOPROTEIN DECREASED
     Dates: start: 20110101, end: 20110130
  3. ATENOLOL [Concomitant]
     Indication: TACHYCARDIA
  4. MAGNESIUM [Concomitant]
     Indication: MINERAL SUPPLEMENTATION
  5. NIASPAN [Suspect]
     Indication: LOW DENSITY LIPOPROTEIN INCREASED
  6. ACUTAB PE [Suspect]
     Indication: SINUSITIS
     Dates: start: 20110101, end: 20110130

REACTIONS (5)
  - FLANK PAIN [None]
  - RHINORRHOEA [None]
  - NOCTURIA [None]
  - DIARRHOEA [None]
  - SINUSITIS [None]
